FAERS Safety Report 10803348 (Version 3)
Quarter: 2015Q2

REPORT INFORMATION
  Report Type: Spontaneous
  Country: US (occurrence: US)
  Receive Date: 20150217
  Receipt Date: 20150603
  Transmission Date: 20150821
  Serious: Yes (Hospitalization)
  Sender: FDA-Public Use
  Company Number: US-BAYER-2015-023842

PATIENT
  Age: 23 Year
  Sex: Female
  Weight: 75.74 kg

DRUGS (3)
  1. MIRENA [Suspect]
     Active Substance: LEVONORGESTREL
     Indication: CONTRACEPTION
     Dosage: 20 MCG/24HR, CONT
     Route: 015
     Dates: start: 20100927, end: 201302
  2. MIRENA [Suspect]
     Active Substance: LEVONORGESTREL
     Indication: CONTRACEPTION
     Dosage: 20 MCG/24HR, CONT
     Route: 015
     Dates: start: 20140213, end: 20140529
  3. IBUPROFEN. [Concomitant]
     Active Substance: IBUPROFEN
     Indication: PAIN
     Dosage: 600 MG, UNK
     Dates: start: 201312

REACTIONS (14)
  - Device issue [None]
  - Medical device discomfort [None]
  - Abdominal pain [None]
  - Internal injury [None]
  - Injury [None]
  - Pelvic pain [None]
  - Depression [Not Recovered/Not Resolved]
  - Device issue [None]
  - Fear [None]
  - Depressed mood [None]
  - Genital haemorrhage [None]
  - Anxiety [Not Recovered/Not Resolved]
  - Uterine perforation [None]
  - Emotional distress [None]

NARRATIVE: CASE EVENT DATE: 201302
